FAERS Safety Report 19752461 (Version 7)
Quarter: 2022Q1

REPORT INFORMATION
  Report Type: Report from Study
  Country: US (occurrence: US)
  Receive Date: 20210826
  Receipt Date: 20220321
  Transmission Date: 20220423
  Serious: Yes (Hospitalization, Other)
  Sender: FDA-Public Use
  Company Number: NVSC2021US192917

PATIENT
  Age: 67 Year
  Sex: Female

DRUGS (2)
  1. GILENYA [Suspect]
     Active Substance: FINGOLIMOD HYDROCHLORIDE
     Indication: Relapsing-remitting multiple sclerosis
     Dosage: 0.5 MG, QD
     Route: 048
     Dates: start: 20210820
  2. GILENYA [Suspect]
     Active Substance: FINGOLIMOD HYDROCHLORIDE
     Dosage: 0.5 MG, QD
     Route: 048
     Dates: start: 20210821

REACTIONS (11)
  - Musculoskeletal discomfort [Unknown]
  - Pneumonia [Unknown]
  - Multiple sclerosis [Unknown]
  - Dizziness [Unknown]
  - Tremor [Unknown]
  - Memory impairment [Unknown]
  - Nerve compression [Unknown]
  - Poor quality sleep [Recovered/Resolved]
  - Back pain [Unknown]
  - Asthenia [Unknown]
  - Fatigue [Recovered/Resolved]

NARRATIVE: CASE EVENT DATE: 20210820
